FAERS Safety Report 7120519-2 (Version None)
Quarter: 2010Q4

REPORT INFORMATION
  Report Type: 
  Country: None (occurrence: None)
  Receive Date: 20101124
  Receipt Date: 20101117
  Transmission Date: 20110411
  Serious: Yes (Other)
  Sender: FDA-Public Use
  Company Number: JP-PFIZER INC-2010154298

PATIENT
  Sex: Female

DRUGS (6)
  1. LIPITOR [Suspect]
     Dosage: UNK
     Route: 048
  2. TRIAMTERENE [Suspect]
     Dosage: UNK
  3. ZANTAC [Suspect]
     Dosage: UNK
     Route: 048
  4. DAI-KENCHU-TO [Concomitant]
     Dosage: UNK
     Route: 048
  5. HOCHUUEKKITOU [Concomitant]
     Dosage: UNK
     Route: 048
  6. MAGNESIUM OXIDE [Concomitant]
     Dosage: UNK
     Route: 048

REACTIONS (2)
  - LEUKOPENIA [None]
  - NEUTROPENIA [None]
